FAERS Safety Report 5131363-X (Version None)
Quarter: 2006Q4

REPORT INFORMATION
  Report Type: 
  Country: None (occurrence: None)
  Receive Date: 20061020
  Receipt Date: 20061009
  Transmission Date: 20070319
  Serious: Yes (Other)
  Sender: FDA-Public Use
  Company Number: PHBS2006ES15799

PATIENT
  Sex: Male

DRUGS (2)
  1. GLEEVEC [Suspect]
     Indication: CHRONIC MYELOID LEUKAEMIA
     Dosage: 400 MG/D
     Route: 065
     Dates: start: 20040301, end: 20060701
  2. GLEEVEC [Suspect]
     Dosage: 800 MG/D
     Route: 065
     Dates: start: 20060701

REACTIONS (3)
  - EYE HAEMORRHAGE [None]
  - OPTIC NEURITIS [None]
  - VISION BLURRED [None]
